FAERS Safety Report 5856893-4 (Version None)
Quarter: 2008Q3

REPORT INFORMATION
  Report Type: 
  Country: None (occurrence: None)
  Receive Date: 20080822
  Receipt Date: 20080822
  Transmission Date: 20090109
  Serious: Yes (Other)
  Sender: FDA-Public Use
  Company Number: None

PATIENT
  Age: 39 Year
  Sex: Female
  Weight: 54.4316 kg

DRUGS (1)
  1. SERTRALINE HYDROCHLORIDE 50 MG MYLAN [Suspect]
     Indication: DEPRESSION
     Dosage: 50MG QD PO
     Route: 048
     Dates: start: 20080802, end: 20080818

REACTIONS (6)
  - DEPRESSION [None]
  - HEADACHE [None]
  - IRRITABILITY [None]
  - MOOD SWINGS [None]
  - PHARMACEUTICAL PRODUCT COMPLAINT [None]
  - THERAPEUTIC RESPONSE UNEXPECTED [None]
